FAERS Safety Report 12202845 (Version 1)
Quarter: 2016Q1

REPORT INFORMATION
  Report Type: Spontaneous
  Country: US (occurrence: US)
  Receive Date: 20160322
  Receipt Date: 20160322
  Transmission Date: 20160526
  Serious: No
  Sender: FDA-Public Use
  Company Number: US-ASTRAZENECA-2016SE30391

PATIENT
  Age: 74 Year
  Sex: Female
  Weight: 56.7 kg

DRUGS (4)
  1. NEXIUM [Suspect]
     Active Substance: ESOMEPRAZOLE MAGNESIUM
     Indication: GASTROOESOPHAGEAL REFLUX DISEASE
     Route: 048
  2. CALCIUM [Concomitant]
     Active Substance: CALCIUM
     Route: 048
  3. ATORVASTATIN [Concomitant]
     Active Substance: ATORVASTATIN
     Indication: BLOOD CHOLESTEROL ABNORMAL
     Route: 048
     Dates: start: 201511
  4. NEXIUM 24HR [Suspect]
     Active Substance: ESOMEPRAZOLE MAGNESIUM
     Indication: GASTROOESOPHAGEAL REFLUX DISEASE
     Dosage: DAILY
     Route: 048

REACTIONS (9)
  - Musculoskeletal discomfort [Unknown]
  - Off label use [Unknown]
  - Hypophagia [Unknown]
  - Flatulence [Unknown]
  - Eructation [Unknown]
  - Weight decreased [Unknown]
  - Ulcer [Unknown]
  - Abdominal discomfort [Unknown]
  - Intentional product use issue [Unknown]

NARRATIVE: CASE EVENT DATE: 201601
